FAERS Safety Report 6803002-0 (Version None)
Quarter: 2010Q2

REPORT INFORMATION
  Report Type: 
  Country: None (occurrence: None)
  Receive Date: 20100628
  Receipt Date: 20100614
  Transmission Date: 20101027
  Serious: Yes (Hospitalization)
  Sender: FDA-Public Use
  Company Number: US-PFIZER INC-2010075002

PATIENT
  Sex: Male
  Weight: 71 kg

DRUGS (7)
  1. XALATAN [Suspect]
     Indication: INTRAOCULAR PRESSURE TEST
     Dosage: ONE DROP, EACH EYE AT BEDTIME
     Route: 047
  2. TYLENOL [Concomitant]
     Dosage: UNK
  3. INSULIN [Concomitant]
     Dosage: UNK
  4. LEVOTHYROXINE [Concomitant]
     Dosage: UNK
  5. LORAZEPAM [Concomitant]
     Dosage: UNK
  6. MILK OF MAGNESIA TAB [Concomitant]
     Dosage: UNK
  7. CYANOCOBALAMIN [Concomitant]
     Dosage: ONCE EVERY MONTH

REACTIONS (1)
  - FISTULA [None]
